FAERS Safety Report 15426830 (Version 1)
Quarter: 2018Q3

REPORT INFORMATION
  Report Type: Spontaneous
  Country: US (occurrence: US)
  Receive Date: 20180925
  Receipt Date: 20180925
  Transmission Date: 20181010
  Serious: No
  Sender: FDA-Public Use
  Company Number: US-INDIVIOR LIMITED-INDV-107495-2018

PATIENT
  Age: 28 Year
  Sex: Male

DRUGS (1)
  1. SUBOXONE [Suspect]
     Active Substance: BUPRENORPHINE HYDROCHLORIDE\NALOXONE HYDROCHLORIDE
     Indication: DRUG DEPENDENCE
     Dosage: CUTTING 8MG INTO TWO PIECES, ONE HALF IN AM AND OTHER HALF IN PM
     Route: 065

REACTIONS (3)
  - Wrong technique in product usage process [Unknown]
  - Drug level decreased [Unknown]
  - Product use issue [Unknown]
